FAERS Safety Report 24195508 (Version 1)
Quarter: 2024Q3

REPORT INFORMATION
  Report Type: Spontaneous
  Country: US (occurrence: US)
  Receive Date: 20240809
  Receipt Date: 20240809
  Transmission Date: 20241017
  Serious: Yes (Hospitalization, Other)
  Sender: ACCORD
  Company Number: US-Accord-440447

PATIENT
  Age: 1 Hour
  Sex: Male

DRUGS (5)
  1. LEVOTHYROXINE [Suspect]
     Active Substance: LEVOTHYROXINE\LEVOTHYROXINE SODIUM
  2. QUETIAPINE FUMARATE [Suspect]
     Active Substance: QUETIAPINE FUMARATE
  3. CITALOPRAM [Suspect]
     Active Substance: CITALOPRAM\CITALOPRAM HYDROBROMIDE
  4. METHADONE [Suspect]
     Active Substance: METHADONE HYDROCHLORIDE
  5. URSODIOL [Suspect]
     Active Substance: URSODIOL

REACTIONS (5)
  - Foetal exposure during pregnancy [Unknown]
  - Neonatal respiratory distress [Recovered/Resolved]
  - Hypertonia neonatal [Recovered/Resolved]
  - Tonic posturing [Recovered/Resolved]
  - Premature baby [Recovered/Resolved]
